FAERS Safety Report 4878029-9 (Version None)
Quarter: 2005Q4

REPORT INFORMATION
  Report Type: 
  Country: None (occurrence: None)
  Receive Date: 20051206
  Receipt Date: 20050908
  Transmission Date: 20060501
  Serious: No
  Sender: FDA-Public Use
  Company Number: USA0509107631

PATIENT
  Age: 56 Year
  Sex: Female

DRUGS (3)
  1. CYMBALTA [Suspect]
     Indication: DEPRESSION
     Dosage: 60 MG
     Dates: start: 20050301
  2. MOBIC [Concomitant]
  3. PRILOSEC [Concomitant]

REACTIONS (4)
  - FEELING JITTERY [None]
  - FOOD CRAVING [None]
  - NERVOUSNESS [None]
  - TREMOR [None]
